FAERS Safety Report 20037794 (Version 1)
Quarter: 2021Q4

REPORT INFORMATION
  Report Type: Spontaneous
  Country: US (occurrence: US)
  Receive Date: 20211105
  Receipt Date: 20211105
  Transmission Date: 20220304
  Serious: Yes (Other)
  Sender: FDA-Public Use
  Company Number: US-GLAXOSMITHKLINE-US2021GSK228617

PATIENT
  Sex: Female

DRUGS (12)
  1. ZANTAC [Suspect]
     Active Substance: RANITIDINE HYDROCHLORIDE
     Indication: Migraine
     Dosage: UNK UNK, QD
     Route: 065
     Dates: start: 199301, end: 202101
  2. ZANTAC [Suspect]
     Active Substance: RANITIDINE HYDROCHLORIDE
     Indication: Nausea
  3. ZANTAC [Suspect]
     Active Substance: RANITIDINE HYDROCHLORIDE
     Indication: Migraine
     Dosage: UNK UNK, QD
     Route: 065
     Dates: start: 199301, end: 202101
  4. ZANTAC [Suspect]
     Active Substance: RANITIDINE HYDROCHLORIDE
     Indication: Nausea
  5. RANITIDINE HYDROCHLORIDE [Suspect]
     Active Substance: RANITIDINE HYDROCHLORIDE
     Indication: Migraine
     Dosage: UNK UNK, QD
     Route: 065
     Dates: start: 199301, end: 202101
  6. RANITIDINE HYDROCHLORIDE [Suspect]
     Active Substance: RANITIDINE HYDROCHLORIDE
     Indication: Nausea
  7. RANITIDINE HYDROCHLORIDE [Suspect]
     Active Substance: RANITIDINE HYDROCHLORIDE
     Indication: Migraine
     Dosage: UNK UNK, QD
     Route: 065
     Dates: start: 199301, end: 202101
  8. RANITIDINE HYDROCHLORIDE [Suspect]
     Active Substance: RANITIDINE HYDROCHLORIDE
     Indication: Nausea
  9. RANITIDINE [Suspect]
     Active Substance: RANITIDINE
     Indication: Migraine
     Dosage: UNK UNK, QD
     Route: 065
     Dates: start: 199301, end: 202101
  10. RANITIDINE [Suspect]
     Active Substance: RANITIDINE
     Indication: Nausea
  11. RANITIDINE [Suspect]
     Active Substance: RANITIDINE
     Indication: Migraine
     Dosage: UNK UNK, QD
     Route: 065
     Dates: start: 199301, end: 202101
  12. RANITIDINE [Suspect]
     Active Substance: RANITIDINE
     Indication: Nausea

REACTIONS (1)
  - Breast cancer [Unknown]
